FAERS Safety Report 6430423-0 (Version None)
Quarter: 2009Q4

REPORT INFORMATION
  Report Type: 
  Country: None (occurrence: None)
  Receive Date: 20091106
  Receipt Date: 20091104
  Transmission Date: 20100525
  Serious: Yes (Other)
  Sender: FDA-Public Use
  Company Number: CH-EISAI INC.-E2080-00201-SPO-CH

PATIENT
  Age: 3 Year
  Sex: Male
  Weight: 14 kg

DRUGS (6)
  1. INOVELON [Suspect]
     Route: 048
     Dates: start: 20090401, end: 20090101
  2. INOVELON [Suspect]
     Route: 048
     Dates: start: 20090101
  3. TOPAMAX [Concomitant]
  4. PHENOBARBITAL [Concomitant]
  5. COTRIM [Concomitant]
     Indication: URINARY TRACT INFECTION
  6. LIORESAL [Concomitant]
     Route: 048

REACTIONS (1)
  - HYPERHIDROSIS [None]
